FAERS Safety Report 7959955-0 (Version None)
Quarter: 2011Q4

REPORT INFORMATION
  Report Type: 
  Country: None (occurrence: None)
  Receive Date: 20111206
  Receipt Date: 20111128
  Transmission Date: 20120403
  Serious: No
  Sender: FDA-Public Use
  Company Number: US-B.I. PHARMACEUTICALS,INC./RIDGEFIELD-2011-BP-26861BP

PATIENT
  Sex: Male

DRUGS (9)
  1. ISOSORBIDE DINITRATE [Concomitant]
  2. PANTOPRAZOLE [Concomitant]
     Indication: ABDOMINAL DISCOMFORT
  3. SIMVASTATIN [Concomitant]
     Indication: BLOOD CHOLESTEROL INCREASED
  4. GLYBURIDE [Concomitant]
     Indication: DIABETES MELLITUS
  5. FOSINOPRIL SODIUM [Concomitant]
  6. FISH OIL [Concomitant]
  7. PRADAXA [Suspect]
     Indication: ATRIAL FIBRILLATION
     Dosage: 300 MG
     Route: 048
     Dates: start: 20111107
  8. ATENOLOL [Concomitant]
  9. JANUMET [Concomitant]

REACTIONS (2)
  - FEELING ABNORMAL [None]
  - MYALGIA [None]
